FAERS Safety Report 10482371 (Version 2)
Quarter: 2014Q4

REPORT INFORMATION
  Report Type: Spontaneous
  Country: US (occurrence: US)
  Receive Date: 20140929
  Receipt Date: 20141106
  Transmission Date: 20150528
  Serious: Yes (Hospitalization)
  Sender: FDA-Public Use
  Company Number: US-BAYER-2014-142808

PATIENT
  Age: 29 Year
  Sex: Female
  Weight: 91 kg

DRUGS (1)
  1. MIRENA [Suspect]
     Active Substance: LEVONORGESTREL
     Indication: CONTRACEPTION
     Dosage: 20 MCG/24HR, CONT
     Route: 015
     Dates: start: 20090831, end: 20130130

REACTIONS (8)
  - Device breakage [None]
  - Complication of device removal [None]
  - Uterine perforation [Not Recovered/Not Resolved]
  - Pain [Not Recovered/Not Resolved]
  - Uterine cervical laceration [None]
  - Medical device discomfort [Not Recovered/Not Resolved]
  - Emotional distress [None]
  - Injury [Not Recovered/Not Resolved]

NARRATIVE: CASE EVENT DATE: 201207
